FAERS Safety Report 8037887-X (Version None)
Quarter: 2012Q1

REPORT INFORMATION
  Report Type: 
  Country: None (occurrence: None)
  Receive Date: 20120111
  Receipt Date: 20120102
  Transmission Date: 20120608
  Serious: Yes (Other)
  Sender: FDA-Public Use
  Company Number: FR-ASTRAZENECA-2012SE00771

PATIENT
  Age: 37 Year
  Sex: Female

DRUGS (8)
  1. PROTELOS [Suspect]
     Indication: SARCOIDOSIS
     Route: 048
     Dates: start: 20100201
  2. MIRENA [Suspect]
     Indication: CONTRACEPTION
     Route: 015
  3. AMITRIPTYLINE HCL [Suspect]
     Indication: HEADACHE
     Route: 048
     Dates: start: 20090101
  4. NEXIUM [Suspect]
     Route: 048
     Dates: start: 20090101
  5. SPECIAFOLDINE [Suspect]
     Indication: SARCOIDOSIS
     Route: 048
  6. METHOTREXATE SODIUM [Suspect]
     Indication: SARCOIDOSIS
     Route: 048
     Dates: start: 20050101
  7. PREDNISOLONE [Suspect]
     Indication: SARCOIDOSIS
     Route: 048
     Dates: start: 20050101
  8. TRILEPTAL [Suspect]
     Indication: EPILEPSY
     Route: 048
     Dates: start: 20050101

REACTIONS (1)
  - EPILEPSY [None]
